FAERS Safety Report 24284292 (Version 5)
Quarter: 2024Q4

REPORT INFORMATION
  Report Type: Report from Study
  Country: JP (occurrence: JP)
  Receive Date: 20240905
  Receipt Date: 20241029
  Transmission Date: 20250115
  Serious: Yes (Death, Life-Threatening, Other)
  Sender: BRISTOL-MYERS SQUIBB COMPANY
  Company Number: JP-ONO-2024JP017984

PATIENT
  Age: 79 Year
  Sex: Male
  Weight: 52.1 kg

DRUGS (3)
  1. OPDIVO [Suspect]
     Active Substance: NIVOLUMAB
     Indication: Non-small cell lung cancer
     Route: 041
     Dates: start: 20240531, end: 20240620
  2. CARBOPLATIN [Suspect]
     Active Substance: CARBOPLATIN
     Indication: Non-small cell lung cancer
     Dosage: AUC 6
     Dates: start: 20240531, end: 20240620
  3. PACLITAXEL [Suspect]
     Active Substance: PACLITAXEL
     Indication: Non-small cell lung cancer
     Dates: start: 20240531, end: 20240620

REACTIONS (6)
  - Cytokine release syndrome [Fatal]
  - Septic shock [Fatal]
  - Myocarditis [Unknown]
  - Corneal disorder [Not Recovered/Not Resolved]
  - Hiccups [Recovered/Resolved]
  - Sepsis [Fatal]

NARRATIVE: CASE EVENT DATE: 20240601
